FAERS Safety Report 4987728-X (Version None)
Quarter: 2006Q2

REPORT INFORMATION
  Report Type: 
  Country: None (occurrence: None)
  Receive Date: 20060428
  Receipt Date: 20060428
  Transmission Date: 20061013
  Serious: Yes (Other)
  Sender: FDA-Public Use
  Company Number: None

PATIENT
  Age: 29 Year
  Sex: Female
  Weight: 69.8539 kg

DRUGS (2)
  1. CIPROFLAXIN 500 MG [Suspect]
     Indication: URINARY TRACT INFECTION
     Dosage: 1 2 TIMES DAILY PO
     Route: 048
     Dates: start: 20060326, end: 20060424
  2. CIPROFLAXIN 500 MG [Suspect]
     Indication: URINARY TRACT INFECTION
     Dosage: 1 2 TIMES DAILY PO
     Route: 048
     Dates: start: 20060404, end: 20060424

REACTIONS (9)
  - ADVERSE DRUG REACTION [None]
  - ARTHRALGIA [None]
  - DEPRESSION [None]
  - DIZZINESS [None]
  - HEADACHE [None]
  - HYPOAESTHESIA [None]
  - IRRITABILITY [None]
  - PARAESTHESIA [None]
  - RESPIRATORY DISORDER [None]
